FAERS Safety Report 5303472-3 (Version None)
Quarter: 2007Q2

REPORT INFORMATION
  Report Type: 
  Country: None (occurrence: None)
  Receive Date: 20070420
  Receipt Date: 20070312
  Transmission Date: 20071010
  Serious: Yes (Other)
  Sender: FDA-Public Use
  Company Number: US-SANOFI-SYNTHELABO-A03200702422

PATIENT
  Sex: Male

DRUGS (3)
  1. ZYPREXA [Concomitant]
     Indication: DRUG USE FOR UNKNOWN INDICATION
     Dosage: UNK
     Route: 065
  2. LITHIUM CARBONATE [Concomitant]
     Indication: DRUG USE FOR UNKNOWN INDICATION
     Dosage: UNK
     Route: 065
  3. AMBIEN [Suspect]
     Indication: INSOMNIA
     Dosage: 5 TO 20 MG UNK
     Route: 048
     Dates: start: 20030519, end: 20040913

REACTIONS (8)
  - AMNESIA [None]
  - DISORIENTATION [None]
  - DRUG DEPENDENCE [None]
  - DRUG TOLERANCE [None]
  - EATING DISORDER [None]
  - ROAD TRAFFIC ACCIDENT [None]
  - SLEEP WALKING [None]
  - WEIGHT INCREASED [None]
